FAERS Safety Report 5189574-3 (Version None)
Quarter: 2006Q4

REPORT INFORMATION
  Report Type: 
  Country: None (occurrence: None)
  Receive Date: 20061221
  Receipt Date: 20060308
  Transmission Date: 20070319
  Serious: No
  Sender: FDA-Public Use
  Company Number: US-AMGEN-US171685

PATIENT
  Sex: Female

DRUGS (3)
  1. ENBREL [Suspect]
     Indication: RHEUMATOID ARTHRITIS
     Route: 065
     Dates: start: 20041001, end: 20060401
  2. ZONEGRAN [Suspect]
     Route: 065
     Dates: start: 20060101, end: 20060401
  3. ARAVA [Concomitant]
     Route: 065

REACTIONS (1)
  - PSORIASIS [None]
